FAERS Safety Report 21504550 (Version 1)
Quarter: 2022Q4

REPORT INFORMATION
  Report Type: Spontaneous
  Country: JP (occurrence: JP)
  Receive Date: 20221025
  Receipt Date: 20221025
  Transmission Date: 20230112
  Serious: Yes (Hospitalization, Other)
  Sender: FDA-Public Use
  Company Number: JP-PFIZER INC-PV202200081149

PATIENT
  Age: 75 Year
  Sex: Male

DRUGS (3)
  1. RITUXIMAB [Suspect]
     Active Substance: RITUXIMAB
     Indication: Mantle cell lymphoma
     Dosage: 375 MG/M2, ON DAY 1
     Route: 042
  2. BORTEZOMIB [Suspect]
     Active Substance: BORTEZOMIB
     Indication: Mantle cell lymphoma
     Dosage: 1.3 MG/M2 ON DAY 1 4 8 + 11 FOR 1ST COURSE IN MONTH 1 FOLLOWED BY 5 MORE COURSES WITH SAME SCHEDULE
     Route: 042
  3. MINOCYCLINE [Concomitant]
     Active Substance: MINOCYCLINE HYDROCHLORIDE
     Indication: Hepatic function abnormal
     Dosage: 100 MG, 2X/DAY
     Route: 048

REACTIONS (1)
  - Pulmonary nocardiosis [Recovering/Resolving]
